FAERS Safety Report 26173846 (Version 1)
Quarter: 2025Q4

REPORT INFORMATION
  Report Type: Report from Study
  Country: BR (occurrence: BR)
  Receive Date: 20251218
  Receipt Date: 20251218
  Transmission Date: 20260118
  Serious: Yes (Other)
  Sender: MELINTA THERAPEUTICS
  Company Number: BR-AstraZeneca-CH-01010409A

PATIENT

DRUGS (2)
  1. METOPROLOL SUCCINATE [Suspect]
     Active Substance: METOPROLOL SUCCINATE
     Indication: Product used for unknown indication
     Dosage: 50 MILLIGRAM, Q12H
     Route: 048
     Dates: start: 2020
  2. METOPROLOL SUCCINATE [Suspect]
     Active Substance: METOPROLOL SUCCINATE
     Dosage: 50 MILLIGRAM, TID
     Route: 048
     Dates: start: 2020

REACTIONS (10)
  - Arrhythmia [Unknown]
  - Emotional disorder [Unknown]
  - Heart rate increased [Unknown]
  - Stress [Unknown]
  - Memory impairment [Unknown]
  - Visual impairment [Unknown]
  - Nervousness [Unknown]
  - Anxiety [Unknown]
  - Malaise [Unknown]
  - Off label use [Unknown]
